FAERS Safety Report 8094624-0 (Version None)
Quarter: 2011Q4

REPORT INFORMATION
  Report Type: 
  Country: None (occurrence: None)
  Receive Date: 20111222
  Receipt Date: 20111102
  Transmission Date: 20120403
  Serious: Yes (Hospitalization)
  Sender: FDA-Public Use
  Company Number: UTC-010677

PATIENT
  Age: 41 Year
  Sex: Female
  Weight: 76.36 kg

DRUGS (4)
  1. LETAIRIS (AMBRISENTAN) (UNKNOWN) [Concomitant]
  2. DIURETICS (DIURETICS) (UNKNOWN) [Concomitant]
  3. TYVASO [Suspect]
     Indication: PORTOPULMONARY HYPERTENSION
     Dosage: 18 - 72 MICROGRAMS (4 IN 1 D), INHALATION, 18 - 44 MICROGRAMS (4 IN 1 D), INHALATION
     Route: 055
     Dates: start: 20110408, end: 20110904
  4. REVATIO (SILDENAFIL CITRATE) (UNKNOWN) [Concomitant]

REACTIONS (7)
  - HEADACHE [None]
  - CARDIAC ARREST [None]
  - VENTRICULAR TACHYCARDIA [None]
  - DIARRHOEA [None]
  - DIZZINESS [None]
  - NAUSEA [None]
  - TREATMENT NONCOMPLIANCE [None]
